FAERS Safety Report 8391679 (Version 3)
Quarter: 2012Q4

REPORT INFORMATION
  Report Type: 
  Country: US (occurrence: US)
  Receive Date: 20120206
  Receipt Date: 20121210
  Transmission Date: 20130627
  Serious: Yes (Other)
  Sender: FDA-Public Use
  Company Number: US-PFIZER INC-2012029605

PATIENT
  Age: 59 Year
  Sex: Female
  Weight: 122 kg

DRUGS (5)
  1. LIPITOR [Suspect]
     Indication: HIGH CHOLESTEROL
     Dosage: 20 mg, daily
  2. NEURONTIN [Suspect]
     Indication: NEUROPATHY PERIPHERAL
     Dosage: 1600 mg, 3x/day
     Dates: start: 2002
  3. OXYCONTIN [Suspect]
     Indication: NEUROPATHY PERIPHERAL
     Dosage: 80 mg, 2x/day
     Dates: start: 2006
  4. OXYCONTIN [Suspect]
     Indication: PAIN
  5. DOCUSATE SODIUM [Concomitant]
     Indication: CONSTIPATION
     Dosage: UNK

REACTIONS (5)
  - Neuropathy peripheral [Unknown]
  - Peripheral sensory neuropathy [Unknown]
  - Pain [Unknown]
  - Amnesia [Unknown]
  - Speech disorder [Unknown]
